FAERS Safety Report 6036407-9 (Version None)
Quarter: 2009Q1

REPORT INFORMATION
  Report Type: 
  Country: None (occurrence: None)
  Receive Date: 20090112
  Receipt Date: 20081230
  Transmission Date: 20090719
  Serious: Yes (Hospitalization)
  Sender: FDA-Public Use
  Company Number: APV1-2008-02848

PATIENT
  Age: 7 Year
  Sex: Male
  Weight: 28 kg

DRUGS (2)
  1. DAYTRANA [Suspect]
     Indication: ATTENTION DEFICIT/HYPERACTIVITY DISORDER
     Dosage: 15 MG, 1X/DAY:QD, TRANSDERMAL; 10 MG, 1X/DAY:QD, TRANSDERMAL
     Route: 062
     Dates: start: 20070901, end: 20070101
  2. DAYTRANA [Suspect]
     Indication: ATTENTION DEFICIT/HYPERACTIVITY DISORDER
     Dosage: 15 MG, 1X/DAY:QD, TRANSDERMAL; 10 MG, 1X/DAY:QD, TRANSDERMAL
     Route: 062
     Dates: start: 20070101

REACTIONS (1)
  - THROMBOCYTOPENIA [None]
